FAERS Safety Report 10339446 (Version 2)
Quarter: 2014Q3

REPORT INFORMATION
  Report Type: Spontaneous
  Country: AU (occurrence: None)
  Receive Date: 20140722
  Receipt Date: 20140723
  Transmission Date: 20150326
  Serious: Yes (Other)
  Sender: FDA-Public Use
  Company Number: 2014AP003619

PATIENT
  Age: 67 Year
  Sex: Male

DRUGS (12)
  1. FELODIPINE. [Concomitant]
     Active Substance: FELODIPINE
  2. INSULIN SUSPENSION ISOPHANE (INSULIN SUSPENSION ISOPHANE) [Concomitant]
  3. SODIUM PICOSULFATE [Suspect]
     Active Substance: SODIUM PICOSULFATE
  4. PERINDOPRIL (PERINDOPRIL) [Suspect]
     Active Substance: PERINDOPRIL
     Indication: HYPERTENSION
  5. INDAPAMIDE. [Suspect]
     Active Substance: INDAPAMIDE
     Indication: HYPERTENSION
  6. PANTOPRAZOLE [Concomitant]
     Active Substance: PANTOPRAZOLE SODIUM
  7. WARFARIN [Concomitant]
     Active Substance: WARFARIN
  8. METFORMIN [Suspect]
     Active Substance: METFORMIN HYDROCHLORIDE
     Indication: TYPE 2 DIABETES MELLITUS
  9. GLICLAZIDE (GLICLAZIDE) [Concomitant]
     Active Substance: GLICLAZIDE
  10. FLUOXETINE [Concomitant]
     Active Substance: FLUOXETINE\FLUOXETINE HYDROCHLORIDE
  11. ALLOPURINOL. [Concomitant]
     Active Substance: ALLOPURINOL
  12. ATORVASTATIN [Concomitant]
     Active Substance: ATORVASTATIN

REACTIONS (6)
  - Lactic acidosis [None]
  - Blood potassium abnormal [None]
  - Dehydration [None]
  - Renal failure acute [None]
  - Metabolic acidosis [None]
  - Haemodialysis [None]
